FAERS Safety Report 23737801 (Version 2)
Quarter: 2024Q2

REPORT INFORMATION
  Report Type: Spontaneous
  Country: US (occurrence: US)
  Receive Date: 20240412
  Receipt Date: 20240531
  Transmission Date: 20240716
  Serious: No
  Sender: FDA-Public Use
  Company Number: US-BIOVITRUM-2024-US-005639

PATIENT
  Age: 65 Year
  Sex: Female

DRUGS (1)
  1. KINERET [Suspect]
     Active Substance: ANAKINRA
     Indication: Product used for unknown indication
     Dosage: DAILY
     Route: 058
     Dates: start: 20240315

REACTIONS (3)
  - Generalised oedema [Unknown]
  - Peripheral swelling [Unknown]
  - Injection site hypersensitivity [Unknown]
